FAERS Safety Report 20076223 (Version 4)
Quarter: 2021Q4

REPORT INFORMATION
  Report Type: Report from Study
  Country: AU (occurrence: AU)
  Receive Date: 20211116
  Receipt Date: 20211229
  Transmission Date: 20220303
  Serious: Yes (Life-Threatening, Hospitalization)
  Sender: FDA-Public Use
  Company Number: AU-SEATTLE GENETICS-2021SGN05795

PATIENT
  Age: 72 Year
  Sex: Male
  Weight: 110 kg

DRUGS (14)
  1. ENFORTUMAB VEDOTIN [Suspect]
     Active Substance: ENFORTUMAB VEDOTIN
     Indication: Transitional cell carcinoma
     Dosage: 1.25 MG/KG, CYCLIC (DAYS 1 AND 8 OF EVERY 3-WEEK CYCLE)
     Route: 042
     Dates: start: 20211022, end: 20211029
  2. PEMBROLIZUMAB [Suspect]
     Active Substance: PEMBROLIZUMAB
     Indication: Transitional cell carcinoma
     Dosage: 200 MG, EVERY 3 WEEKS (DAY 1 OF EACH 3-WEEK CYCLE)
     Route: 042
     Dates: start: 20211022, end: 20211029
  3. RABEPRAZOLE SODIUM [Concomitant]
     Active Substance: RABEPRAZOLE SODIUM
     Indication: Gastrooesophageal reflux disease
     Dosage: UNK UNK, UNKNOWN FREQ.
     Route: 048
     Dates: start: 2018
  4. CLONAZEPAM [Concomitant]
     Active Substance: CLONAZEPAM
     Indication: Rapid eye movement sleep behaviour disorder
     Dosage: UNK, UNKNOWN FREQ.
     Route: 048
     Dates: start: 202103
  5. TERBINAFINE [Concomitant]
     Active Substance: TERBINAFINE
     Indication: Tinea pedis
     Dosage: UNK, UNKNOWN FREQ.
     Route: 048
     Dates: start: 202108
  6. LIPITOR [Concomitant]
     Active Substance: ATORVASTATIN CALCIUM
     Indication: Hypercholesterolaemia
     Dosage: UNK, UNKNOWN FREQ.
     Route: 048
     Dates: start: 2011
  7. LIQUID VITAMIN B12 [Concomitant]
     Indication: Nutritional supplementation
     Dosage: UNK, UNKNOWN FREQ.
     Route: 048
     Dates: start: 202108
  8. METOCLOPRAMIDE [Concomitant]
     Active Substance: METOCLOPRAMIDE
     Indication: Nausea
     Dosage: UNK, UNKNOWN FREQ.
     Route: 048
     Dates: start: 20211018
  9. ONDANSETRON [Concomitant]
     Active Substance: ONDANSETRON
     Indication: Nausea
     Dosage: UNK, UNKNOWN FREQ.
     Route: 048
     Dates: start: 20211025
  10. PROCHLORPERAZINE [Concomitant]
     Active Substance: PROCHLORPERAZINE
     Indication: Nausea
     Dosage: UNK, UNKNOWN FREQ.
     Route: 048
     Dates: start: 20211103
  11. LORATADINE [Concomitant]
     Active Substance: LORATADINE
     Indication: Rash maculo-papular
     Dosage: UNK, UNKNOWN FREQ.
     Route: 048
     Dates: start: 20211103
  12. MAGNESIUM [Concomitant]
     Active Substance: MAGNESIUM
     Indication: Nutritional supplementation
     Dosage: UNK, UNKNOWN FREQ.
     Route: 048
     Dates: start: 20211105
  13. Blood builder [Concomitant]
     Indication: Nutritional supplementation
     Dosage: UNK UNK, UNKNOWN FREQ.
     Route: 048
     Dates: start: 202108
  14. TRIAMCINOLONE [Concomitant]
     Active Substance: TRIAMCINOLONE
     Indication: Product used for unknown indication
     Dosage: 0.02 %, UNKNOWN FREQ.
     Route: 065
     Dates: start: 20211103

REACTIONS (9)
  - Hypomagnesaemia [Recovered/Resolved]
  - Hypocalcaemia [Recovered/Resolved]
  - Hypophosphataemia [Recovered/Resolved]
  - Neutrophil count decreased [Recovered/Resolved]
  - Cardio-respiratory arrest [Recovered/Resolved]
  - Dermatitis exfoliative generalised [Recovered/Resolved]
  - Hypovolaemia [Recovered/Resolved]
  - Hypotension [Recovered/Resolved]
  - Renal impairment [Recovered/Resolved]

NARRATIVE: CASE EVENT DATE: 20211108
